FAERS Safety Report 10178544 (Version 1)
Quarter: 2014Q2

REPORT INFORMATION
  Report Type: Spontaneous
  Country: US (occurrence: None)
  Receive Date: 20140516
  Receipt Date: 20140516
  Transmission Date: 20141212
  Serious: Yes (Disabling)
  Sender: FDA-Public Use
  Company Number: None

PATIENT
  Age: 36 Year
  Sex: Female
  Weight: 78.93 kg

DRUGS (1)
  1. CETIRIZINE [Suspect]
     Indication: MULTIPLE ALLERGIES
     Route: 048
     Dates: start: 20140505

REACTIONS (6)
  - Bladder pain [None]
  - Urethral pain [None]
  - Swelling face [None]
  - Skin discolouration [None]
  - Dysuria [None]
  - Urinary retention [None]
